FAERS Safety Report 14611896 (Version 1)
Quarter: 2018Q1

REPORT INFORMATION
  Report Type: Spontaneous
  Country: FR (occurrence: FR)
  Receive Date: 20180308
  Receipt Date: 20180308
  Transmission Date: 20180509
  Serious: Yes (Hospitalization)
  Sender: FDA-Public Use
  Company Number: FR-ROCHE-2080003

PATIENT
  Age: 79 Year
  Sex: Male

DRUGS (3)
  1. NOVORAPID [Concomitant]
     Active Substance: INSULIN ASPART
     Route: 065
  2. ATEZOLIZUMAB. [Suspect]
     Active Substance: ATEZOLIZUMAB
     Indication: BLADDER NEOPLASM
     Dosage: ATEZOLIZUMAB (ATU)
     Route: 065
     Dates: start: 20170505, end: 20171201
  3. LANTUS [Concomitant]
     Active Substance: INSULIN GLARGINE
     Route: 065

REACTIONS (1)
  - Hepatitis [Recovered/Resolved]

NARRATIVE: CASE EVENT DATE: 20171221
